FAERS Safety Report 13626164 (Version 2)
Quarter: 2017Q2

REPORT INFORMATION
  Report Type: Spontaneous
  Country: DE (occurrence: DE)
  Receive Date: 20170608
  Receipt Date: 20170629
  Transmission Date: 20170830
  Serious: Yes (Life-Threatening, Disabling, Other)
  Sender: FDA-Public Use
  Company Number: GXKR2017DE003021

PATIENT
  Age: 68 Year
  Sex: Male
  Weight: 74.5 kg

DRUGS (1)
  1. OXALIPLATIN HEXAL [Suspect]
     Active Substance: OXALIPLATIN
     Indication: COLON CANCER METASTATIC
     Dosage: 160 MG (INFUSION RATE PROBABLY 500 ML/90 MIN)
     Route: 042
     Dates: start: 201702

REACTIONS (9)
  - Anaphylactic shock [Recovering/Resolving]
  - Dyspnoea [Recovering/Resolving]
  - Cyanosis [Recovering/Resolving]
  - Hypotension [Recovering/Resolving]
  - Hypersensitivity [Recovering/Resolving]
  - Tachypnoea [Recovering/Resolving]
  - Choking sensation [Recovering/Resolving]
  - Panic reaction [Recovering/Resolving]
  - Bronchospasm [Recovering/Resolving]

NARRATIVE: CASE EVENT DATE: 20170508
